FAERS Safety Report 17808458 (Version 1)
Quarter: 2020Q2

REPORT INFORMATION
  Report Type: Spontaneous
  Country: US (occurrence: US)
  Receive Date: 20200520
  Receipt Date: 20200520
  Transmission Date: 20200714
  Serious: Yes (Other)
  Sender: FDA-Public Use
  Company Number: US-BAYER-2020-090395

PATIENT
  Age: 30 Year
  Sex: Female

DRUGS (1)
  1. MIRENA [Suspect]
     Active Substance: LEVONORGESTREL
     Indication: CONTRACEPTION
     Dosage: 20 ?G PER DAY CONTINUOUSLY
     Route: 015
     Dates: start: 200801, end: 20140826

REACTIONS (11)
  - Anxiety [Unknown]
  - Post procedural complication [None]
  - Menorrhagia [Recovered/Resolved]
  - Abdominal pain [None]
  - Dysmenorrhoea [Recovered/Resolved]
  - Uterine perforation [None]
  - Vaginal haemorrhage [Recovered/Resolved]
  - Pelvic pain [Recovered/Resolved]
  - Urinary tract disorder [None]
  - Genital haemorrhage [None]
  - Depression [Unknown]

NARRATIVE: CASE EVENT DATE: 201008
